FAERS Safety Report 8352256 (Version 5)
Quarter: 2012Q4

REPORT INFORMATION
  Report Type: 
  Country: US (occurrence: US)
  Receive Date: 20120124
  Receipt Date: 20121008
  Transmission Date: 20130627
  Serious: Yes (Hospitalization, Other)
  Sender: FDA-Public Use
  Company Number: US-RB-036110-12

PATIENT
  Age: 0 None
  Sex: Female
  Weight: 7.7 kg

DRUGS (10)
  1. SUBOXONE TABLET [Suspect]
     Indication: DRUG DEPENDENCE
     Dosage: 4 mg daily
     Route: 064
     Dates: start: 201101, end: 201105
  2. SUBOXONE TABLET [Suspect]
     Dosage: Various doses
     Route: 064
     Dates: start: 201105, end: 20110923
  3. SUBOXONE FILM [Suspect]
     Indication: DRUG DEPENDENCE
     Dosage: Various doses
     Route: 064
     Dates: start: 201105, end: 20110923
  4. SUBUTEX [Suspect]
     Indication: DRUG DEPENDENCE
     Dosage: Various doses
     Route: 064
     Dates: start: 201105, end: 20110923
  5. OPIATES [Suspect]
     Indication: DRUG DEPENDENCE
     Dosage: Unknown dosing regimen
     Route: 064
     Dates: start: 201105, end: 20110923
  6. GENERIC BUPRENORPHINE [Suspect]
     Indication: DRUG DEPENDENCE
     Dosage: Various doses
     Route: 064
     Dates: start: 201105, end: 20110923
  7. XANAX [Suspect]
     Indication: PRODUCT USED FOR UNKNOWN INDICATION
     Dosage: Dosing details unknown
     Route: 065
  8. MORPHINE [Suspect]
     Indication: PRODUCT USED FOR UNKNOWN INDICATION
     Dosage: Dosing details unknown
     Route: 065
  9. ALCOHOL [Suspect]
     Indication: PRODUCT USED FOR UNKNOWN INDICATION
     Dosage: Dosing details unknown
     Route: 065
  10. NICOTINE [Suspect]
     Indication: PRODUCT USED FOR UNKNOWN INDICATION
     Dosage: Dosing details unknown
     Route: 065

REACTIONS (7)
  - Foetal exposure during pregnancy [Recovered/Resolved]
  - Premature baby [Recovered/Resolved]
  - Tremor neonatal [Recovered/Resolved]
  - Drug withdrawal syndrome neonatal [Recovered/Resolved]
  - Gastrooesophageal reflux disease [Not Recovered/Not Resolved]
  - Respiratory disorder neonatal [Recovered/Resolved]
  - Developmental delay [Not Recovered/Not Resolved]
